FAERS Safety Report 18207445 (Version 3)
Quarter: 2021Q1

REPORT INFORMATION
  Report Type: Spontaneous
  Country: US (occurrence: US)
  Receive Date: 20200828
  Receipt Date: 20210331
  Transmission Date: 20210419
  Serious: Yes (Other)
  Sender: FDA-Public Use
  Company Number: US-CATALYST PHARMACEUTICALS, INC-2020CAT00379

PATIENT
  Age: 62 Year
  Sex: Male
  Weight: 112.02 kg

DRUGS (9)
  1. FIRDAPSE [Suspect]
     Active Substance: AMIFAMPRIDINE PHOSPHATE
     Dosage: 10 MG, 1X/DAY IN THE EVENING (11 PM)
     Route: 048
     Dates: start: 202004, end: 2020
  2. FIRDAPSE [Suspect]
     Active Substance: AMIFAMPRIDINE PHOSPHATE
     Indication: MYASTHENIC SYNDROME
     Dosage: 5 MG (1/2 TABLET), 2X/DAY IN THE MORNING (7 AM) AND THE AFTERNOON (3 PM)
     Route: 048
     Dates: start: 202004, end: 2020
  3. FIRDAPSE [Suspect]
     Active Substance: AMIFAMPRIDINE PHOSPHATE
     Dosage: 15 MG DAILY DOSE
     Route: 048
     Dates: start: 2020, end: 2020
  4. FIRDAPSE [Suspect]
     Active Substance: AMIFAMPRIDINE PHOSPHATE
     Dosage: 20 MG DAILY DOSE
     Route: 048
     Dates: start: 2020, end: 2020
  5. FIRDAPSE [Suspect]
     Active Substance: AMIFAMPRIDINE PHOSPHATE
     Dosage: 25 MG DAILY DOSE
     Route: 048
     Dates: start: 2020, end: 2020
  6. FIRDAPSE [Suspect]
     Active Substance: AMIFAMPRIDINE PHOSPHATE
     Dosage: 20 MG, 1X/DAY
     Route: 048
     Dates: start: 2020
  7. LISINOPRIL HCTZ [Concomitant]
     Active Substance: HYDROCHLOROTHIAZIDE\LISINOPRIL
  8. FIRDAPSE [Suspect]
     Active Substance: AMIFAMPRIDINE PHOSPHATE
     Dosage: 25 MG DAILY DOSE
     Route: 048
     Dates: start: 2020, end: 2020
  9. FIRDAPSE [Suspect]
     Active Substance: AMIFAMPRIDINE PHOSPHATE
     Dosage: TRIED INCREASING HIS DOSE A FEW TIMES
     Route: 048
     Dates: start: 2020, end: 2020

REACTIONS (6)
  - Cervical spinal stenosis [Not Recovered/Not Resolved]
  - Muscle tightness [Recovering/Resolving]
  - Intervertebral disc space narrowing [Not Recovered/Not Resolved]
  - Pain [Recovering/Resolving]
  - Spinal cord compression [Not Recovered/Not Resolved]
  - Fat tissue increased [Not Recovered/Not Resolved]

NARRATIVE: CASE EVENT DATE: 2020
